FAERS Safety Report 8573542-5 (Version None)
Quarter: 2012Q2

REPORT INFORMATION
  Report Type: 
  Country: None (occurrence: None)
  Receive Date: 20120423
  Receipt Date: 20090928
  Transmission Date: 20120825
  Serious: Yes (Hospitalization)
  Sender: FDA-Public Use
  Company Number: PHEH2009US11032

PATIENT
  Age: 58 Year
  Sex: Female
  Weight: 74.8 kg

DRUGS (2)
  1. EXJADE [Suspect]
     Indication: IRON OVERLOAD
     Dosage: 2000 MG, QD, ORAL
     Route: 047
     Dates: start: 20090318, end: 20090424
  2. EXJADE [Suspect]
     Indication: ACUTE MYELOID LEUKAEMIA
     Dosage: 2000 MG, QD, ORAL
     Route: 047
     Dates: start: 20090318, end: 20090424

REACTIONS (1)
  - ACUTE MYELOID LEUKAEMIA [None]
